FAERS Safety Report 24130696 (Version 1)
Quarter: 2024Q3

REPORT INFORMATION
  Report Type: Spontaneous
  Country: US (occurrence: US)
  Receive Date: 20240724
  Receipt Date: 20240724
  Transmission Date: 20241016
  Serious: Yes (Other)
  Sender: AMGEN
  Company Number: US-AMGEN-USASP2024144585

PATIENT
  Age: 19 Year
  Sex: Male

DRUGS (7)
  1. PREDNISONE [Suspect]
     Active Substance: PREDNISONE
     Indication: Retinal vein occlusion
     Dosage: 60 MILLIGRAM, QD, A FIVE-DAY TRIAL
     Route: 048
  2. PREDNISONE [Suspect]
     Active Substance: PREDNISONE
     Indication: Rhegmatogenous retinal detachment
  3. LATANOPROST [Concomitant]
     Active Substance: LATANOPROST
     Indication: Ocular hypertension
     Dosage: UNK, QD
  4. TIMOLOL [Concomitant]
     Active Substance: TIMOLOL
     Indication: Ocular hypertension
     Dosage: UNK, QD
  5. DORZOLAMIDE [Concomitant]
     Active Substance: DORZOLAMIDE
     Indication: Ocular hypertension
     Dosage: UNK, BID
  6. AVASTIN [Concomitant]
     Active Substance: BEVACIZUMAB
     Dosage: 1.25 MILLIGRAM, (0.05ML OF 2.5 MG/0. I ML) PER INJECTION
  7. AVASTIN [Concomitant]
     Active Substance: BEVACIZUMAB
     Dosage: 0.625 MG / 0.025 ML (HALF DOSE)

REACTIONS (7)
  - Vitreous haemorrhage [Unknown]
  - Macular oedema [Unknown]
  - Blindness [Unknown]
  - Retinopathy proliferative [Unknown]
  - Glaucomatous optic neuropathy [Unknown]
  - Subretinal fluid [Recovering/Resolving]
  - Intraocular pressure increased [Unknown]
